FAERS Safety Report 8498367-0 (Version None)
Quarter: 2012Q3

REPORT INFORMATION
  Report Type: 
  Country: None (occurrence: None)
  Receive Date: 20120709
  Receipt Date: 20120622
  Transmission Date: 20120928
  Serious: No
  Sender: FDA-Public Use
  Company Number: US-AMGEN-USASP2011059077

PATIENT
  Age: 42 Year
  Sex: Female

DRUGS (3)
  1. GABAPENTIN [Concomitant]
     Dosage: 30 MG, BID
  2. METHOTREXATE [Concomitant]
     Dosage: 0.4 MG, UNK
     Route: 048
  3. ENBREL [Suspect]
     Indication: RHEUMATOID ARTHRITIS
     Dosage: 50 MG, QWK
     Dates: start: 20110621

REACTIONS (3)
  - MALAISE [None]
  - COUGH [None]
  - NAUSEA [None]
